FAERS Safety Report 4562613-6 (Version None)
Quarter: 2005Q1

REPORT INFORMATION
  Report Type: 
  Country: None (occurrence: None)
  Receive Date: 20050127
  Receipt Date: 20041130
  Transmission Date: 20050727
  Serious: Yes (Hospitalization, Other)
  Sender: FDA-Public Use
  Company Number: PHHO2004CA16962

PATIENT
  Age: 51 Year
  Sex: Female

DRUGS (1)
  1. ZELNORM [Suspect]
     Dates: start: 20041026

REACTIONS (8)
  - BARIUM ENEMA [None]
  - COLONIC POLYP [None]
  - COLONOSCOPY [None]
  - DIVERTICULUM [None]
  - DIVERTICULUM INTESTINAL [None]
  - ENDOSCOPY UPPER GASTROINTESTINAL TRACT [None]
  - POLYPECTOMY [None]
  - REFLUX OESOPHAGITIS [None]
